FAERS Safety Report 7450902-7 (Version None)
Quarter: 2011Q2

REPORT INFORMATION
  Report Type: 
  Country: None (occurrence: None)
  Receive Date: 20110429
  Receipt Date: 20110429
  Transmission Date: 20111010
  Serious: No
  Sender: FDA-Public Use
  Company Number: None

PATIENT
  Age: 22 Year
  Sex: Male
  Weight: 68.0396 kg

DRUGS (1)
  1. PRED FORTE [Suspect]
     Indication: CORNEAL DISORDER
     Dosage: 1 DROP/EYE 4 TIMES/DAY
     Dates: start: 20110412, end: 20110426

REACTIONS (9)
  - ANXIETY [None]
  - EMOTIONAL DISORDER [None]
  - MOOD SWINGS [None]
  - PALPITATIONS [None]
  - NIGHT SWEATS [None]
  - TACHYPHRENIA [None]
  - BALANCE DISORDER [None]
  - FEELING ABNORMAL [None]
  - MAJOR DEPRESSION [None]
